FAERS Safety Report 8486506-7 (Version None)
Quarter: 2012Q3

REPORT INFORMATION
  Report Type: 
  Country: None (occurrence: None)
  Receive Date: 20120703
  Receipt Date: 20120628
  Transmission Date: 20120928
  Serious: No
  Sender: FDA-Public Use
  Company Number: US-PFIZER INC-2012156517

PATIENT
  Age: 56 Year
  Sex: Female

DRUGS (1)
  1. CELEBREX [Suspect]
     Indication: MYALGIA
     Dosage: 200 MG, UNK
     Route: 048

REACTIONS (1)
  - GASTROOESOPHAGEAL REFLUX DISEASE [None]
